FAERS Safety Report 5344025-0 (Version None)
Quarter: 2007Q2

REPORT INFORMATION
  Report Type: 
  Country: None (occurrence: None)
  Receive Date: 20070416
  Receipt Date: 20070126
  Transmission Date: 20071010
  Serious: No
  Sender: FDA-Public Use
  Company Number: 2007SP000325

PATIENT
  Age: 59 Year
  Sex: Female
  Weight: 78.0187 kg

DRUGS (7)
  1. LUNESTA [Suspect]
     Indication: INSOMNIA
     Dosage: 3 MG;HS;ORAL
     Route: 048
     Dates: start: 20070120, end: 20070121
  2. MOBIC [Concomitant]
  3. ALLEGRA [Concomitant]
  4. BENAZEPRIL HYDROCHLORIDE [Concomitant]
  5. ADVAIR DISKUS 100/50 [Concomitant]
  6. ALPRAZOLAM [Concomitant]
  7. IBUPROFEN [Concomitant]

REACTIONS (1)
  - INSOMNIA [None]
